FAERS Safety Report 22238102 (Version 1)
Quarter: 2023Q2

REPORT INFORMATION
  Report Type: Report from Study
  Country: US (occurrence: None)
  Receive Date: 20230421
  Receipt Date: 20230421
  Transmission Date: 20230722
  Serious: Yes (Life-Threatening)
  Sender: FDA-Public Use
  Company Number: 2023A085543

PATIENT
  Age: 15 Year
  Sex: Male

DRUGS (2)
  1. OLAPARIB [Suspect]
     Active Substance: OLAPARIB
     Indication: Osteosarcoma
     Route: 048
     Dates: start: 20230215
  2. CERALASERTIB [Suspect]
     Active Substance: CERALASERTIB
     Indication: Osteosarcoma
     Route: 048
     Dates: start: 20230215

REACTIONS (1)
  - Platelet count decreased [Recovered/Resolved]

NARRATIVE: CASE EVENT DATE: 20230228
